FAERS Safety Report 5297536-0 (Version None)
Quarter: 2007Q2

REPORT INFORMATION
  Report Type: 
  Country: None (occurrence: None)
  Receive Date: 20070416
  Receipt Date: 20070403
  Transmission Date: 20071010
  Serious: Yes (Other)
  Sender: FDA-Public Use
  Company Number: PHBS2007JP06045

PATIENT
  Sex: Male

DRUGS (1)
  1. NITRODERM [Suspect]
     Route: 062

REACTIONS (1)
  - PANCYTOPENIA [None]
